FAERS Safety Report 13743729 (Version 1)
Quarter: 2017Q3

REPORT INFORMATION
  Report Type: Spontaneous
  Country: GB (occurrence: GB)
  Receive Date: 20170711
  Receipt Date: 20170711
  Transmission Date: 20171127
  Serious: Yes (Other)
  Sender: FDA-Public Use
  Company Number: GB-ASTRAZENECA-2017SE52428

PATIENT
  Age: 72 Year
  Sex: Female
  Weight: 44.5 kg

DRUGS (7)
  1. CARBOCISTEINE [Concomitant]
     Active Substance: CARBOCYSTEINE
     Indication: THYROID DISORDER
  2. LEVOTHYROXINE. [Concomitant]
     Active Substance: LEVOTHYROXINE
     Indication: THYROID DISORDER
  3. SALBUTAMOL [Concomitant]
     Active Substance: ALBUTEROL
     Indication: ATRIAL SEPTAL DEFECT
  4. EKLIRA [Suspect]
     Active Substance: ACLIDINIUM BROMIDE
     Dosage: 322 MCG, TWO TIMES A DAY
     Route: 055
     Dates: start: 20150223, end: 20150909
  5. PHYLLOCONTIN [Concomitant]
     Active Substance: AMINOPHYLLINE
     Indication: BRONCHIAL OBSTRUCTION
  6. AZITHROMYCIN ANHYDROUS. [Concomitant]
     Active Substance: AZITHROMYCIN ANHYDROUS
     Dosage: 3 TIMES A WEEK
  7. PROLIA [Concomitant]
     Active Substance: DENOSUMAB

REACTIONS (4)
  - Drug dose omission [Unknown]
  - Choking [Recovered/Resolved]
  - Device malfunction [Unknown]
  - Cough [Recovered/Resolved]

NARRATIVE: CASE EVENT DATE: 201509
